FAERS Safety Report 14037198 (Version 1)
Quarter: 2017Q4

REPORT INFORMATION
  Report Type: Spontaneous
  Country: US (occurrence: None)
  Receive Date: 20171003
  Receipt Date: 20171003
  Transmission Date: 20180321
  Serious: Yes (Hospitalization)
  Sender: FDA-Public Use
  Company Number: None

PATIENT
  Age: 42 Year
  Sex: Female

DRUGS (5)
  1. LIDOCAINE. [Concomitant]
     Active Substance: LIDOCAINE
  2. ENBREL [Suspect]
     Active Substance: ETANERCEPT
     Indication: RHEUMATOID ARTHRITIS
     Route: 058
     Dates: start: 20160224
  3. MELOXICAM. [Concomitant]
     Active Substance: MELOXICAM
  4. METHOTREXATE. [Concomitant]
     Active Substance: METHOTREXATE
  5. NUVARING [Concomitant]
     Active Substance: ETHINYL ESTRADIOL\ETONOGESTREL

REACTIONS (7)
  - Pain [None]
  - Infection susceptibility increased [None]
  - Folliculitis [None]
  - Loss of personal independence in daily activities [None]
  - Rheumatoid arthritis [None]
  - Furuncle [None]
  - Disease complication [None]
